FAERS Safety Report 6718270-3 (Version None)
Quarter: 2010Q2

REPORT INFORMATION
  Report Type: 
  Country: None (occurrence: None)
  Receive Date: 20100510
  Receipt Date: 20100504
  Transmission Date: 20101027
  Serious: Yes (Other)
  Sender: FDA-Public Use
  Company Number: JP-BRACCO-002658

PATIENT
  Age: 76 Year
  Sex: Female

DRUGS (3)
  1. IOPAMIDOL [Suspect]
     Indication: CORONARY ARTERIAL STENT INSERTION
     Route: 013
  2. IOPAMIDOL [Suspect]
     Indication: ANGINA PECTORIS
     Route: 013
  3. ACETYLCYSTEINE [Concomitant]
     Indication: PROPHYLAXIS
     Route: 048

REACTIONS (1)
  - NEPHROPATHY TOXIC [None]
